FAERS Safety Report 14704836 (Version 2)
Quarter: 2018Q2

REPORT INFORMATION
  Report Type: Spontaneous
  Country: JP (occurrence: JP)
  Receive Date: 20180402
  Receipt Date: 20180608
  Transmission Date: 20180711
  Serious: Yes (Death, Other)
  Sender: FDA-Public Use
  Company Number: JP-ROCHE-2024236

PATIENT
  Age: 66 Year
  Sex: Female
  Weight: 42 kg

DRUGS (6)
  1. NEDAPLATIN [Concomitant]
     Active Substance: NEDAPLATIN
     Indication: CERVIX CARCINOMA
     Route: 041
     Dates: start: 20170915, end: 20170915
  2. PACLITAXEL. [Concomitant]
     Active Substance: PACLITAXEL
     Indication: CERVIX CARCINOMA
     Dosage: DOSAGE IS UNCERTAIN.
     Route: 041
     Dates: start: 20170522, end: 20170612
  3. IRINOTECAN HYDROCHLORIDE. [Suspect]
     Active Substance: IRINOTECAN HYDROCHLORIDE
     Indication: CERVIX CARCINOMA
     Route: 041
     Dates: start: 20170915, end: 20170922
  4. AVASTIN [Suspect]
     Active Substance: BEVACIZUMAB
     Indication: CERVIX CARCINOMA
     Route: 041
     Dates: start: 20170522, end: 20170612
  5. CARBOPLATIN. [Concomitant]
     Active Substance: CARBOPLATIN
     Indication: CERVIX CARCINOMA
     Dosage: DOSAGE IS UNCERTAIN.
     Route: 041
     Dates: start: 20170522, end: 20170612
  6. AVASTIN [Suspect]
     Active Substance: BEVACIZUMAB
     Route: 041
     Dates: start: 20170915, end: 20171005

REACTIONS (3)
  - Metastases to spine [Unknown]
  - Ileus paralytic [Fatal]
  - Enterovesical fistula [Fatal]

NARRATIVE: CASE EVENT DATE: 20171015
